FAERS Safety Report 7491287-X (Version None)
Quarter: 2011Q2

REPORT INFORMATION
  Report Type: 
  Country: None (occurrence: None)
  Receive Date: 20110519
  Receipt Date: 20110512
  Transmission Date: 20111010
  Serious: Yes (Life-Threatening, Hospitalization, Disabling)
  Sender: FDA-Public Use
  Company Number: B0696201A

PATIENT
  Sex: Male
  Weight: 10.4 kg

DRUGS (43)
  1. SUCRALFATE [Concomitant]
     Dosage: .9G PER DAY
     Route: 048
     Dates: start: 20090911
  2. VFEND [Concomitant]
     Dosage: 60MG PER DAY
     Route: 042
     Dates: start: 20090725, end: 20090729
  3. CAPTOPRIL [Concomitant]
     Dosage: 9MG PER DAY
     Route: 048
     Dates: start: 20090903
  4. MEROPENEM [Concomitant]
     Dosage: 1050MG PER DAY
     Route: 042
     Dates: start: 20090719, end: 20090802
  5. VANCOMYCIN [Suspect]
     Dosage: 450MG PER DAY
     Route: 042
     Dates: start: 20090722, end: 20090804
  6. DICHLOTRIDE [Concomitant]
     Dosage: 10MG PER DAY
     Route: 048
     Dates: start: 20090824
  7. MAXIPIME [Concomitant]
     Dosage: 1050MG PER DAY
     Route: 042
     Dates: start: 20090716, end: 20090721
  8. ANTHROBIN P [Concomitant]
     Dosage: 500IU PER DAY
     Route: 042
     Dates: start: 20090818, end: 20090923
  9. CALCICOL [Concomitant]
     Dosage: 5ML PER DAY
     Route: 042
     Dates: start: 20090725, end: 20090904
  10. SOLU-CORTEF [Concomitant]
     Dosage: 50MG PER DAY
     Dates: start: 20090721, end: 20090721
  11. SODIUM CHLORIDE [Concomitant]
     Dosage: 36ML PER DAY
     Dates: start: 20090804, end: 20090904
  12. DOBUTAMINE HYDROCHLORIDE [Concomitant]
     Dosage: 50MG PER DAY
     Route: 042
     Dates: start: 20090818, end: 20090901
  13. TESPAMIN [Suspect]
     Indication: STEM CELL TRANSPLANT
     Dosage: 98MG PER DAY
     Dates: start: 20090716, end: 20090717
  14. NEUTROGIN [Concomitant]
     Dates: start: 20090722, end: 20090802
  15. ACETAMINOPHEN [Concomitant]
     Dosage: .5G PER DAY
     Route: 048
     Dates: start: 20090722, end: 20090731
  16. LANSOPRAZOLE [Concomitant]
     Dosage: 7.5MG PER DAY
     Route: 048
     Dates: start: 20091006
  17. FUNGUARD [Concomitant]
     Dosage: 50MG PER DAY
     Route: 042
     Dates: start: 20090716, end: 20090727
  18. AMBISOME [Concomitant]
     Dosage: 50MG PER DAY
     Route: 042
     Dates: start: 20090803, end: 20090928
  19. TAIPERACILIN [Concomitant]
     Dosage: 1.2G PER DAY
     Route: 042
     Dates: start: 20090813, end: 20090816
  20. LINTACIN [Concomitant]
     Dosage: 140MG PER DAY
     Dates: start: 20090822, end: 20090828
  21. ZOSYN [Concomitant]
     Dosage: 3.375G PER DAY
     Dates: start: 20090901, end: 20090903
  22. TAMIFLU [Concomitant]
     Dosage: 21MG PER DAY
     Route: 048
     Dates: start: 20090715, end: 20090717
  23. ITRIZOLE [Concomitant]
     Dosage: 5ML PER DAY
     Route: 048
     Dates: start: 20090824
  24. ACYCRIL [Concomitant]
     Dosage: 150MG PER DAY
     Route: 042
     Dates: start: 20090716, end: 20090827
  25. IMMUNE GLOBULIN INTRAVENOUS (HUMAN) [Concomitant]
     Dosage: 2.5G PER DAY
     Route: 042
     Dates: start: 20090823, end: 20090827
  26. NAFASTON [Concomitant]
     Dosage: 30MG PER DAY
     Route: 042
     Dates: start: 20090820, end: 20090901
  27. MILRINONE [Concomitant]
     Dosage: 10MG PER DAY
     Dates: start: 20090823, end: 20090915
  28. CEFAZOLIN SODIUM [Concomitant]
     Dosage: 1G PER DAY
     Route: 048
     Dates: start: 20090904
  29. SEPAMIT [Concomitant]
     Dosage: 6MG PER DAY
     Route: 048
     Dates: start: 20090924, end: 20090929
  30. ANTHROBIN P [Concomitant]
     Dosage: 500IU PER DAY
     Route: 042
     Dates: start: 20090719, end: 20090810
  31. FENTANYL [Concomitant]
     Dosage: .2MG PER DAY
     Route: 042
     Dates: start: 20090721, end: 20090929
  32. ALBUMIN (HUMAN) [Concomitant]
     Dosage: 50ML PER DAY
     Route: 042
     Dates: start: 20090804, end: 20090804
  33. ALKERAN [Suspect]
     Indication: STEM CELL TRANSPLANT
     Dosage: 34MG PER DAY
     Route: 042
     Dates: start: 20090716, end: 20090717
  34. ADALAT [Concomitant]
     Dosage: 5MG PER DAY
     Route: 048
     Dates: start: 20090817, end: 20090819
  35. URSO 250 [Concomitant]
     Dosage: 180MG PER DAY
     Route: 048
     Dates: start: 20090823, end: 20091001
  36. FAMOTIDINE [Concomitant]
     Dosage: 5MG PER DAY
     Route: 042
     Dates: start: 20090731, end: 20090911
  37. DOPAMINE HCL [Concomitant]
     Dosage: 50MG PER DAY
     Route: 042
     Dates: start: 20090824, end: 20090831
  38. TAMIFLU [Concomitant]
     Dosage: 44MG PER DAY
     Route: 048
     Dates: start: 20090822, end: 20090826
  39. SEPAMIT [Concomitant]
     Dosage: 6MG PER DAY
     Route: 048
     Dates: start: 20090817, end: 20090819
  40. FAMOTIDINE [Concomitant]
     Dosage: 10MG PER DAY
     Route: 048
     Dates: start: 20090921, end: 20091004
  41. IMMUNE GLOBULIN INTRAVENOUS (HUMAN) [Concomitant]
     Dosage: 2.5G PER DAY
     Route: 042
     Dates: start: 20090721, end: 20090721
  42. POTASSIUM CHLORIDE [Concomitant]
     Dosage: 5ML PER DAY
     Route: 042
     Dates: start: 20090729, end: 20090926
  43. CEFOTAX [Concomitant]
     Dosage: 900MG PER DAY
     Dates: start: 20090816, end: 20090915

REACTIONS (1)
  - RESPIRATORY DISTRESS [None]
